FAERS Safety Report 15318376 (Version 1)
Quarter: 2018Q3

REPORT INFORMATION
  Report Type: Spontaneous
  Country: US (occurrence: US)
  Receive Date: 20180817
  Receipt Date: 20180817
  Transmission Date: 20181010
  Serious: Yes (Other)
  Sender: FDA-Public Use
  Company Number: None

PATIENT
  Age: 59 Year
  Sex: Female
  Weight: 76.5 kg

DRUGS (2)
  1. CIPROFLAXICIN [Suspect]
     Active Substance: CIPROFLOXACIN
     Indication: PROCEDURAL COMPLICATION
     Dates: start: 20180803, end: 20180803
  2. CIPROFLAXICIN [Suspect]
     Active Substance: CIPROFLOXACIN
     Indication: COLONOSCOPY
     Dates: start: 20180803, end: 20180803

REACTIONS (5)
  - Agitation [None]
  - Confusional state [None]
  - Anxiety [None]
  - Crying [None]
  - Panic attack [None]

NARRATIVE: CASE EVENT DATE: 20180812
